FAERS Safety Report 19180368 (Version 2)
Quarter: 2021Q2

REPORT INFORMATION
  Report Type: Spontaneous
  Country: US (occurrence: US)
  Receive Date: 20210426
  Receipt Date: 20210517
  Transmission Date: 20210717
  Serious: No
  Sender: FDA-Public Use
  Company Number: US-GLAXOSMITHKLINE-US2021AMR087882

PATIENT
  Sex: Female

DRUGS (2)
  1. BENLYSTA [Suspect]
     Active Substance: BELIMUMAB
     Indication: SYSTEMIC LUPUS ERYTHEMATOSUS
     Dosage: 200 MG, WE
     Route: 042
  2. TRIAMCINOLONE [Suspect]
     Active Substance: TRIAMCINOLONE
     Indication: PRODUCT USED FOR UNKNOWN INDICATION
     Dosage: UNK
     Route: 065

REACTIONS (9)
  - Rash pruritic [Unknown]
  - Headache [Unknown]
  - Skin ulcer [Unknown]
  - Dermatitis [Unknown]
  - Systemic lupus erythematosus rash [Unknown]
  - Condition aggravated [Unknown]
  - Drug ineffective [Unknown]
  - Epistaxis [Unknown]
  - Rash papular [Unknown]
